FAERS Safety Report 9125252 (Version 2)
Quarter: 2013Q1

REPORT INFORMATION
  Report Type: Spontaneous
  Country: US (occurrence: US)
  Receive Date: 20130227
  Receipt Date: 20130315
  Transmission Date: 20140127
  Serious: Yes (Hospitalization)
  Sender: FDA-Public Use
  Company Number: US-B.I. PHARMACEUTICALS,INC./RIDGEFIELD-2013-BI-04853BP

PATIENT
  Age: 61 None
  Sex: Female
  Weight: 97.52 kg

DRUGS (16)
  1. PRADAXA [Suspect]
     Indication: ATRIAL FIBRILLATION
     Dosage: 300 MG
     Route: 048
     Dates: start: 20130215
  2. PRADAXA [Suspect]
     Dosage: 150 MG
     Route: 048
     Dates: start: 20130102, end: 20130214
  3. PRADAXA [Suspect]
     Dosage: 300 MG
     Route: 048
     Dates: start: 20121217, end: 20130101
  4. MULTAQ [Concomitant]
     Indication: ATRIAL FIBRILLATION
     Dates: start: 201105, end: 201302
  5. LOVAZA [Concomitant]
  6. MAXAIR [Concomitant]
  7. PREVACID [Concomitant]
  8. ZYRTEC [Concomitant]
  9. BIOTIN [Concomitant]
  10. FLEXERIL [Concomitant]
  11. CARDIZEM [Concomitant]
  12. PRAVACHOL [Concomitant]
  13. CALCIUM [Concomitant]
  14. FLAXSEED OIL [Concomitant]
  15. MULTIVITAMIN [Concomitant]
  16. COZAAR [Concomitant]

REACTIONS (4)
  - Cardiac ablation [Recovered/Resolved]
  - Haematuria [Unknown]
  - Flatulence [Not Recovered/Not Resolved]
  - Eructation [Not Recovered/Not Resolved]
